FAERS Safety Report 6519384-3 (Version None)
Quarter: 2009Q4

REPORT INFORMATION
  Report Type: 
  Country: None (occurrence: None)
  Receive Date: 20091228
  Receipt Date: 20091223
  Transmission Date: 20100525
  Serious: Yes (Hospitalization)
  Sender: FDA-Public Use
  Company Number: US-MEDIMMUNE-MEDI-0009958

PATIENT
  Sex: Male

DRUGS (2)
  1. SYNAGIS [Suspect]
     Dates: start: 20091001, end: 20091001
  2. SYNAGIS [Suspect]
     Dates: start: 20091120, end: 20091120

REACTIONS (3)
  - COUGH [None]
  - NAUSEA [None]
  - VOMITING [None]
